FAERS Safety Report 9514942 (Version 1)
Quarter: 2013Q1

REPORT INFORMATION
  Report Type: Spontaneous
  Country: US (occurrence: None)
  Receive Date: 20130305
  Receipt Date: 20130305
  Transmission Date: 20140127
  Serious: Yes (Other)
  Sender: FDA-Public Use
  Company Number: 163-21880-12113152

PATIENT
  Age: 71 Year
  Sex: Male
  Weight: 90.72 kg

DRUGS (10)
  1. REVLIMID (LENALIDOMIDE) [Suspect]
     Indication: PLASMA CELL MYELOMA
     Route: 048
     Dates: start: 200812
  2. CO Q-10 (UBIDECARENONE) [Concomitant]
  3. DEXAMETHASONE (DEXAMETHASONE) [Concomitant]
  4. FERROUS GLUCONATE [Concomitant]
  5. FINASTERIDE [Concomitant]
  6. GLUCOSAMINE [Concomitant]
  7. METOPROLOL SUCCINATE [Concomitant]
  8. MULTIVITAMINS [Concomitant]
  9. NEXIUM [Concomitant]
  10. POTASSIUM IODIDE (POTASSIUM IODIDE) [Concomitant]

REACTIONS (1)
  - Clostridium difficile colitis [None]
